FAERS Safety Report 4523375-1 (Version None)
Quarter: 2004Q4

REPORT INFORMATION
  Report Type: 
  Country: None (occurrence: None)
  Receive Date: 20041210
  Receipt Date: 20030605
  Transmission Date: 20050328
  Serious: Yes (Hospitalization, Disabling, Other)
  Sender: FDA-Public Use
  Company Number: US-MERCK-0306USA00694

PATIENT
  Age: 74 Year
  Sex: Female

DRUGS (7)
  1. VIOXX [Suspect]
     Route: 048
     Dates: start: 20000626
  2. QUININE [Concomitant]
     Route: 065
  3. CALCIUM (UNSPECIFIED) [Concomitant]
     Route: 065
  4. VITAMINS (UNSPECIFIED) [Concomitant]
     Route: 065
  5. AMITRIPTYLINE HYDROCHLORIDE [Concomitant]
     Route: 048
     Dates: start: 20000626
  6. AXOCET (ACETAMINOPHEN (+) BUTALBITAL) [Concomitant]
     Route: 065
  7. PAXIL [Concomitant]
     Route: 065

REACTIONS (34)
  - ACCELERATED HYPERTENSION [None]
  - ADVERSE EVENT [None]
  - AMNESIA [None]
  - ANEURYSM [None]
  - ANGINA PECTORIS [None]
  - ANXIETY [None]
  - ARTHRALGIA [None]
  - BURSITIS [None]
  - CARDIOMEGALY [None]
  - CARPAL TUNNEL SYNDROME [None]
  - CHEST WALL PAIN [None]
  - CONVULSION [None]
  - DIABETES MELLITUS NON-INSULIN-DEPENDENT [None]
  - DYSPEPSIA [None]
  - FACIAL PALSY [None]
  - FALL [None]
  - HAEMORRHAGIC STROKE [None]
  - HAND FRACTURE [None]
  - HOARSENESS [None]
  - HYPERCHOLESTEROLAEMIA [None]
  - HYPERTRIGLYCERIDAEMIA [None]
  - HYPOAESTHESIA [None]
  - ILEUS [None]
  - NASOPHARYNGITIS [None]
  - NIGHT CRAMPS [None]
  - OCULAR DISCOMFORT [None]
  - OEDEMA [None]
  - PAIN IN EXTREMITY [None]
  - PARAESTHESIA [None]
  - PRURITUS [None]
  - RHINITIS ALLERGIC [None]
  - SMALL INTESTINAL OBSTRUCTION [None]
  - THROAT IRRITATION [None]
  - UPPER RESPIRATORY TRACT INFECTION [None]
